FAERS Safety Report 7362625-3 (Version None)
Quarter: 2011Q1

REPORT INFORMATION
  Report Type: 
  Country: None (occurrence: None)
  Receive Date: 20110320
  Receipt Date: 20100624
  Transmission Date: 20110831
  Serious: Yes (Life-Threatening, Hospitalization)
  Sender: FDA-Public Use
  Company Number: US-BAYER-200942453NA

PATIENT
  Sex: Female
  Weight: 68.027 kg

DRUGS (5)
  1. YASMIN [Suspect]
     Indication: PREMENSTRUAL SYNDROME
     Dosage: UNK UNK, QD
     Route: 048
     Dates: start: 20010101, end: 20071201
  2. YASMIN [Suspect]
     Indication: MENSTRUATION IRREGULAR
  3. ALLEGRA [Concomitant]
  4. SYNTHROID [Concomitant]
  5. HYDROCHLOROTHIAZIDE [Concomitant]

REACTIONS (9)
  - CHEST PAIN [None]
  - FATIGUE [None]
  - ASTHENIA [None]
  - PAIN [None]
  - DYSPNOEA [None]
  - MUSCULOSKELETAL PAIN [None]
  - PULMONARY INFARCTION [None]
  - TRAUMATIC LUNG INJURY [None]
  - PULMONARY EMBOLISM [None]
